FAERS Safety Report 7192365-5 (Version None)
Quarter: 2010Q4

REPORT INFORMATION
  Report Type: 
  Country: None (occurrence: None)
  Receive Date: 20101223
  Receipt Date: 20101215
  Transmission Date: 20110411
  Serious: Yes (Other)
  Sender: FDA-Public Use
  Company Number: US-SANOFI-AVENTIS-2010SA071061

PATIENT
  Age: 63 Year
  Sex: Female
  Weight: 117.3 kg

DRUGS (14)
  1. MULTAQ [Suspect]
     Indication: ATRIAL FIBRILLATION
     Route: 048
     Dates: start: 20100601, end: 20101116
  2. OXYGEN [Concomitant]
  3. ARANESP [Concomitant]
  4. IRON [Concomitant]
     Route: 048
  5. BUDESONIDE/FORMOTEROL [Concomitant]
  6. ALBUTEROL [Concomitant]
  7. CLONIDINE HCL [Concomitant]
  8. LASIX [Concomitant]
  9. HYDROCODONE BITARTRATE [Concomitant]
  10. VITAMIN B [Concomitant]
  11. PRILOSEC [Concomitant]
  12. POLYETHYLENE GLYCOL [Concomitant]
  13. INSULIN [Concomitant]
  14. PROAIR HFA [Concomitant]

REACTIONS (4)
  - BLINDNESS UNILATERAL [None]
  - HEART RATE IRREGULAR [None]
  - OPTIC ISCHAEMIC NEUROPATHY [None]
  - PAPILLOEDEMA [None]
